FAERS Safety Report 13782351 (Version 2)
Quarter: 2017Q3

REPORT INFORMATION
  Report Type: Spontaneous
  Country: JP (occurrence: JP)
  Receive Date: 20170724
  Receipt Date: 20170801
  Transmission Date: 20171127
  Serious: Yes (Hospitalization)
  Sender: FDA-Public Use
  Company Number: JP-ELI_LILLY_AND_COMPANY-JP201707008944

PATIENT
  Age: 75 Year
  Sex: Female

DRUGS (2)
  1. OPSUMIT [Concomitant]
     Active Substance: MACITENTAN
     Indication: PORTOPULMONARY HYPERTENSION
     Route: 048
  2. ADCIRCA [Suspect]
     Active Substance: TADALAFIL
     Indication: PORTOPULMONARY HYPERTENSION
     Dosage: UNK
     Route: 048

REACTIONS (1)
  - Ascites [Unknown]
